FAERS Safety Report 24412038 (Version 1)
Quarter: 2024Q4

REPORT INFORMATION
  Report Type: Spontaneous
  Country: US (occurrence: None)
  Receive Date: 20241007
  Receipt Date: 20241007
  Transmission Date: 20250115
  Serious: No
  Sender: Public
  Company Number: None

PATIENT
  Age: 52 Year
  Sex: Male

DRUGS (1)
  1. EMPAGLIFLOZIN [Suspect]
     Active Substance: EMPAGLIFLOZIN
     Indication: Diabetes mellitus
     Dates: start: 20211108, end: 20240314

REACTIONS (6)
  - Acidosis [None]
  - Tinea cruris [None]
  - Acute kidney injury [None]
  - Clostridium difficile infection [None]
  - Euglycaemic diabetic ketoacidosis [None]
  - Therapy interrupted [None]

NARRATIVE: CASE EVENT DATE: 20240418
